FAERS Safety Report 8612682 (Version 3)
Quarter: 2012Q4

REPORT INFORMATION
  Report Type: 
  Country: JP (occurrence: JP)
  Receive Date: 20120613
  Receipt Date: 20121017
  Transmission Date: 20130627
  Serious: Yes (Hospitalization)
  Sender: FDA-Public Use
  Company Number: JP-BAYER-2012-058156

PATIENT
  Age: 65 Year
  Sex: Male
  Weight: 60 kg

DRUGS (6)
  1. NEXAVAR [Suspect]
     Indication: HEPATIC NEOPLASM MALIGNANT
     Dosage: Daily dose 800 mg
     Route: 048
     Dates: start: 20120517, end: 20120529
  2. TAKEPRON [Concomitant]
     Indication: PROPHYLAXIS AGAINST GASTROINTESTINAL ULCER
     Dosage: Daily dose 15 mg
     Route: 048
     Dates: start: 201202
  3. URSO [Concomitant]
     Indication: HEPATIC FUNCTION ABNORMAL
     Dosage: Daily dose 300 mg
     Route: 048
     Dates: start: 2012
  4. URSO [Concomitant]
     Indication: HEPATITIS B
  5. URSO [Concomitant]
     Indication: HEPATITIS B
  6. MIYA-BM [Concomitant]
     Dosage: Daily dose 3 DF
     Route: 048
     Dates: start: 2012

REACTIONS (1)
  - Hepatic encephalopathy [Recovered/Resolved]
